FAERS Safety Report 15904870 (Version 1)
Quarter: 2019Q1

REPORT INFORMATION
  Report Type: Spontaneous
  Country: BE (occurrence: BE)
  Receive Date: 20190204
  Receipt Date: 20190204
  Transmission Date: 20190417
  Serious: Yes (Other)
  Sender: FDA-Public Use
  Company Number: BE-SA-2019SA027541

PATIENT

DRUGS (3)
  1. FAMPYRA [Suspect]
     Active Substance: DALFAMPRIDINE
     Indication: GAIT DISTURBANCE
  2. LEMTRADA [Suspect]
     Active Substance: ALEMTUZUMAB
  3. FAMPYRA [Suspect]
     Active Substance: DALFAMPRIDINE
     Indication: FATIGUE

REACTIONS (2)
  - Myoclonic epilepsy [Unknown]
  - Tremor [Unknown]
